FAERS Safety Report 16544619 (Version 1)
Quarter: 2019Q3

REPORT INFORMATION
  Report Type: Spontaneous
  Country: US (occurrence: US)
  Receive Date: 20190709
  Receipt Date: 20190709
  Transmission Date: 20191004
  Serious: No
  Sender: FDA-Public Use
  Company Number: US-C B FLEET CO INC-201811-US-002836

PATIENT
  Age: 7 Year
  Sex: Female

DRUGS (2)
  1. NIX COMPLETE MAXIMUM STRENGTH LICE ELIMINATION [Suspect]
     Active Substance: PERMETHRIN
     Indication: LICE INFESTATION
     Dosage: UNKNOWN DOSAGE
     Route: 061
  2. NIX [Suspect]
     Active Substance: PERMETHRIN
     Indication: LICE INFESTATION
     Dosage: UNKNOWN DOSE
     Route: 061

REACTIONS (1)
  - Drug ineffective [Recovered/Resolved]
